FAERS Safety Report 4914142-5 (Version None)
Quarter: 2006Q1

REPORT INFORMATION
  Report Type: 
  Country: None (occurrence: None)
  Receive Date: 20060216
  Receipt Date: 20051214
  Transmission Date: 20060701
  Serious: Yes (Hospitalization)
  Sender: FDA-Public Use
  Company Number: US-GLAXOSMITHKLINE-A0585816A

PATIENT
  Age: 42 Year
  Sex: Male

DRUGS (2)
  1. CONTAC COLD 12 HOUR RELIEF NONDROWSY CAPLET [Suspect]
     Route: 048
     Dates: start: 20051130, end: 20051130
  2. ALLOPURINOL [Concomitant]

REACTIONS (10)
  - CONVULSION [None]
  - DISORIENTATION [None]
  - DIZZINESS [None]
  - FALL [None]
  - FATIGUE [None]
  - FEELING HOT [None]
  - HEADACHE [None]
  - LOSS OF CONSCIOUSNESS [None]
  - POSTICTAL STATE [None]
  - TONGUE BITING [None]
